FAERS Safety Report 4892495-4 (Version None)
Quarter: 2006Q1

REPORT INFORMATION
  Report Type: 
  Country: None (occurrence: None)
  Receive Date: 20060125
  Receipt Date: 20060125
  Transmission Date: 20060701
  Serious: Yes (Other)
  Sender: FDA-Public Use
  Company Number: None

PATIENT
  Age: 30 Year
  Sex: Male
  Weight: 65.7716 kg

DRUGS (1)
  1. CLEAR CARE CIBA VISION, A NOVARTIS COMPANY [Suspect]
     Dates: start: 20060124, end: 20060124

REACTIONS (3)
  - CHEMICAL BURNS OF EYE [None]
  - INSTILLATION SITE REACTION [None]
  - PHARMACEUTICAL PRODUCT COMPLAINT [None]
